FAERS Safety Report 4275024-8 (Version None)
Quarter: 2004Q1

REPORT INFORMATION
  Report Type: 
  Country: None (occurrence: None)
  Receive Date: 20040116
  Receipt Date: 20040106
  Transmission Date: 20041129
  Serious: Yes (Hospitalization)
  Sender: FDA-Public Use
  Company Number: MEDI-0001244

PATIENT
  Sex: 0

DRUGS (1)
  1. SYNAGIS [Suspect]
     Dosage: SEE IMAGE
     Route: 030

REACTIONS (5)
  - BRONCHIOLITIS [None]
  - MALAISE [None]
  - PALLOR [None]
  - POST PROCEDURAL COMPLICATION [None]
  - RESPIRATORY DISORDER NEONATAL [None]
